FAERS Safety Report 8850362 (Version 1)
Quarter: 2012Q4

REPORT INFORMATION
  Report Type: 
  Country: US (occurrence: US)
  Receive Date: 20121019
  Receipt Date: 20121019
  Transmission Date: 20130627
  Serious: No
  Sender: FDA-Public Use
  Company Number: US-VERTEX PHARMACEUTICAL INC.-2012-022870

PATIENT
  Age: 55 Year
  Sex: Male
  Weight: 80 kg

DRUGS (3)
  1. INCIVEK [Suspect]
     Indication: HEPATITIS C
     Dosage: 750 mg, tid
     Route: 048
     Dates: start: 20120812
  2. PEGASYS [Suspect]
     Indication: HEPATITIS C
     Dosage: 180 ?g, weekly
     Route: 058
     Dates: start: 20120812
  3. RIBAVIRIN [Suspect]
     Indication: HEPATITIS C
     Dosage: 400 mg, qd
     Route: 048
     Dates: start: 20120812

REACTIONS (9)
  - Dizziness [Recovered/Resolved]
  - Headache [Recovered/Resolved]
  - Haemorrhoids [Not Recovered/Not Resolved]
  - Diarrhoea [Not Recovered/Not Resolved]
  - Pruritus generalised [Not Recovered/Not Resolved]
  - Vomiting [Recovered/Resolved]
  - Anorectal discomfort [Not Recovered/Not Resolved]
  - Anal pruritus [Not Recovered/Not Resolved]
  - Nausea [Recovered/Resolved]
